FAERS Safety Report 19458794 (Version 1)
Quarter: 2021Q2

REPORT INFORMATION
  Report Type: Other
  Country: US (occurrence: US)
  Receive Date: 20210624
  Receipt Date: 20210624
  Transmission Date: 20210717
  Serious: No
  Sender: FDA-Public Use
  Company Number: US-ROCHE-2307544

PATIENT

DRUGS (7)
  1. MYCOPHENOLATE MOFETIL. [Concomitant]
     Active Substance: MYCOPHENOLATE MOFETIL
  2. PREDNISONE. [Concomitant]
     Active Substance: PREDNISONE
  3. AZATHIOPRINE. [Concomitant]
     Active Substance: AZATHIOPRINE
  4. METHOTREXATE. [Concomitant]
     Active Substance: METHOTREXATE
  5. DOXYCYCLINE. [Concomitant]
     Active Substance: DOXYCYCLINE
  6. DAPSONE. [Concomitant]
     Active Substance: DAPSONE
  7. RITUXIMAB. [Suspect]
     Active Substance: RITUXIMAB
     Indication: PEMPHIGOID
     Route: 065

REACTIONS (3)
  - Mental status changes [Unknown]
  - Infection [Unknown]
  - Compression fracture [Unknown]
